FAERS Safety Report 17722666 (Version 1)
Quarter: 2020Q2

REPORT INFORMATION
  Report Type: Spontaneous
  Country: US (occurrence: US)
  Receive Date: 20200429
  Receipt Date: 20200429
  Transmission Date: 20200714
  Serious: No
  Sender: FDA-Public Use
  Company Number: US-TEVA-2020-US-1228339

PATIENT
  Age: 84 Year
  Sex: Male

DRUGS (1)
  1. MEXILETINE HYDROCHLORIDE. [Suspect]
     Active Substance: MEXILETINE HYDROCHLORIDE
     Route: 065

REACTIONS (1)
  - Product use complaint [Unknown]
